FAERS Safety Report 7886699-6 (Version None)
Quarter: 2011Q4

REPORT INFORMATION
  Report Type: 
  Country: None (occurrence: None)
  Receive Date: 20111102
  Receipt Date: 20110709
  Transmission Date: 20120403
  Serious: No
  Sender: FDA-Public Use
  Company Number: US-AMGEN-USASP2011034994

PATIENT
  Age: 71 Year
  Sex: Male

DRUGS (2)
  1. ARAVA [Concomitant]
     Dosage: 1 MG, QD
     Dates: start: 20090101
  2. ENBREL [Suspect]
     Indication: RHEUMATOID ARTHRITIS
     Dosage: 50 MG, QWK
     Dates: start: 20110616

REACTIONS (2)
  - RENAL DISORDER [None]
  - LABORATORY TEST ABNORMAL [None]
